FAERS Safety Report 4909934-2 (Version None)
Quarter: 2006Q1

REPORT INFORMATION
  Report Type: 
  Country: None (occurrence: None)
  Receive Date: 20060208
  Receipt Date: 20060201
  Transmission Date: 20060701
  Serious: Yes (Hospitalization, Other)
  Sender: FDA-Public Use
  Company Number: 2006-01-0348

PATIENT
  Age: 6 Week
  Sex: Male
  Weight: 4.3 kg

DRUGS (3)
  1. CELESTONE [Suspect]
     Indication: STRIDOR
     Dosage: 40 DROPS ORAL
     Route: 048
     Dates: start: 20051130, end: 20051209
  2. VACCINE (NOS) [Concomitant]
  3. ANTIBIOTIC [Concomitant]

REACTIONS (5)
  - DIARRHOEA [None]
  - DYSPNOEA [None]
  - GASTROOESOPHAGEAL REFLUX DISEASE [None]
  - HYDROCEPHALUS [None]
  - VOMITING [None]
